FAERS Safety Report 13354921 (Version 4)
Quarter: 2017Q3

REPORT INFORMATION
  Report Type: Spontaneous
  Country: US (occurrence: US)
  Receive Date: 20170321
  Receipt Date: 20170804
  Transmission Date: 20171127
  Serious: Yes (Congenital Anomaly, Other)
  Sender: FDA-Public Use
  Company Number: PHEH2017US007881

PATIENT
  Sex: Female

DRUGS (2)
  1. ZOFRAN [Suspect]
     Active Substance: ONDANSETRON HYDROCHLORIDE
     Indication: FOETAL EXPOSURE DURING PREGNANCY
     Dosage: MOTHER DOSE: 08 MG, UNK
     Route: 064
  2. ZOFRAN [Suspect]
     Active Substance: ONDANSETRON HYDROCHLORIDE
     Indication: FOETAL EXPOSURE DURING PREGNANCY
     Route: 064

REACTIONS (34)
  - Cardiac aneurysm [Unknown]
  - Dermatitis [Unknown]
  - Upper respiratory tract infection [Unknown]
  - Pharyngitis [Unknown]
  - Haemorrhoids [Unknown]
  - Pyrexia [Unknown]
  - Constipation [Unknown]
  - Left-to-right cardiac shunt [Unknown]
  - Dysarthria [Unknown]
  - Melanocytic naevus [Unknown]
  - Herpangina [Unknown]
  - Dermatitis diaper [Unknown]
  - Persistent foetal circulation [Unknown]
  - Atrial septal defect [Unknown]
  - Dysphagia [Unknown]
  - Conjunctivitis [Unknown]
  - Micturition urgency [Unknown]
  - Ventricular septal defect [Unknown]
  - Left atrial enlargement [Unknown]
  - Gastrooesophageal reflux disease [Unknown]
  - Viral infection [Unknown]
  - Left ventricular enlargement [Unknown]
  - Injury [Unknown]
  - Cardiac murmur [Unknown]
  - Viral rash [Unknown]
  - Rhinitis [Unknown]
  - Otitis media [Recovered/Resolved]
  - Dysuria [Unknown]
  - Selective eating disorder [Unknown]
  - Tibial torsion [Unknown]
  - Tricuspid valve incompetence [Unknown]
  - Foetal exposure during pregnancy [Unknown]
  - Jaundice neonatal [Unknown]
  - Diarrhoea [Unknown]
